FAERS Safety Report 7828402-1 (Version None)
Quarter: 2011Q4

REPORT INFORMATION
  Report Type: 
  Country: None (occurrence: None)
  Receive Date: 20111020
  Receipt Date: 20111018
  Transmission Date: 20120403
  Serious: No
  Sender: FDA-Public Use
  Company Number: US-PFIZER INC-2011250448

PATIENT
  Sex: Female

DRUGS (2)
  1. CHANTIX [Suspect]
     Dosage: 0.5 MG, UNK
  2. CHANTIX [Suspect]
     Dosage: UNK

REACTIONS (3)
  - NERVOUSNESS [None]
  - DYSGEUSIA [None]
  - INSOMNIA [None]
